FAERS Safety Report 12605739 (Version 1)
Quarter: 2016Q3

REPORT INFORMATION
  Report Type: Spontaneous
  Country: IE (occurrence: IE)
  Receive Date: 20160729
  Receipt Date: 20160729
  Transmission Date: 20161109
  Serious: Yes (Other)
  Sender: FDA-Public Use
  Company Number: IE-BRISTOL-MYERS SQUIBB COMPANY-BMS-2016-060597

PATIENT
  Age: 76 Year
  Sex: Female

DRUGS (1)
  1. YERVOY [Suspect]
     Active Substance: IPILIMUMAB
     Indication: MALIGNANT MELANOMA
     Dosage: UNAV
     Route: 065
     Dates: start: 2016

REACTIONS (6)
  - Metastases to lung [Unknown]
  - Malignant neoplasm progression [Unknown]
  - Sinusitis [Unknown]
  - Cytoreductive surgery [Unknown]
  - Haemorrhage [Unknown]
  - Sarcoma [Unknown]
